FAERS Safety Report 4613551-1 (Version None)
Quarter: 2005Q1

REPORT INFORMATION
  Report Type: 
  Country: None (occurrence: None)
  Receive Date: 20050316
  Receipt Date: 20050304
  Transmission Date: 20050727
  Serious: Yes (Death)
  Sender: FDA-Public Use
  Company Number: 2005-00106

PATIENT
  Age: 68 Year
  Sex: Female

DRUGS (1)
  1. VELCADE [Suspect]
     Indication: MULTIPLE MYELOMA

REACTIONS (4)
  - DISEASE RECURRENCE [None]
  - DRUG INTOLERANCE [None]
  - MULTIPLE FRACTURES [None]
  - REFUSAL OF TREATMENT BY PATIENT [None]
